FAERS Safety Report 25539809 (Version 2)
Quarter: 2025Q4

REPORT INFORMATION
  Report Type: Spontaneous
  Country: JP (occurrence: JP)
  Receive Date: 20250710
  Receipt Date: 20251107
  Transmission Date: 20260118
  Serious: Yes (Hospitalization, Other)
  Sender: MERCK SHARP & DOHME LLC
  Company Number: JP-MSD-2408JPN003948J

PATIENT
  Age: 68 Year
  Sex: Male

DRUGS (4)
  1. KEYTRUDA [Suspect]
     Active Substance: PEMBROLIZUMAB
     Indication: Renal cell carcinoma
     Dosage: DOSE DESCRIPTION : UNK
     Route: 065
     Dates: start: 20240528
  2. LENVATINIB MESYLATE [Suspect]
     Active Substance: LENVATINIB MESYLATE
     Indication: Renal cell carcinoma
     Dosage: DOSE DESCRIPTION : 20 MILLIGRAM, QD?DAILY DOSE : 20 MILLIGRAM
     Route: 048
     Dates: start: 20240528, end: 2024
  3. LENVATINIB MESYLATE [Suspect]
     Active Substance: LENVATINIB MESYLATE
     Indication: Renal cell carcinoma
     Dosage: DOSE DESCRIPTION : 14 MILLIGRAM
     Route: 048
     Dates: start: 2024, end: 2024
  4. LENVATINIB MESYLATE [Suspect]
     Active Substance: LENVATINIB MESYLATE
     Indication: Renal cell carcinoma
     Dosage: DOSE DESCRIPTION : 10 MILLIGRAM
     Route: 048
     Dates: start: 2024

REACTIONS (5)
  - Epistaxis [Unknown]
  - Hypothyroidism [Unknown]
  - Palmar-plantar erythrodysaesthesia syndrome [Unknown]
  - Pyrexia [Unknown]
  - Dysphonia [Unknown]

NARRATIVE: CASE EVENT DATE: 20240101
